FAERS Safety Report 5726287-0 (Version None)
Quarter: 2008Q2

REPORT INFORMATION
  Report Type: 
  Country: None (occurrence: None)
  Receive Date: 20080501
  Receipt Date: 20080501
  Transmission Date: 20081010
  Serious: Yes (Hospitalization)
  Sender: FDA-Public Use
  Company Number: None

PATIENT
  Age: 86 Year
  Sex: Male

DRUGS (1)
  1. WARFARIN SODIUM [Suspect]
     Dosage: 2 MG EVERY DAY PO
     Route: 048
     Dates: start: 20060117

REACTIONS (2)
  - HAEMATURIA [None]
  - PULMONARY EMBOLISM [None]
